FAERS Safety Report 4679015-4 (Version None)
Quarter: 2005Q2

REPORT INFORMATION
  Report Type: 
  Country: None (occurrence: None)
  Receive Date: 20050531
  Receipt Date: 20050518
  Transmission Date: 20051028
  Serious: Yes (Other)
  Sender: FDA-Public Use
  Company Number: GBWYE602920APR05

PATIENT
  Sex: Female

DRUGS (14)
  1. PREMARIN [Suspect]
  2. ZOTON (LANSOPRAZOLE,  , 0) [Suspect]
  3. MEBEVERINE (MEBEVERINE) [Concomitant]
  4. SALBUTAMOL (SALBUTAMOL) [Concomitant]
  5. CO-PROXAMOL (DEXTROPROPOXYPHENE HYDROCHLORIDE/PARACETAMOL) [Concomitant]
  6. GABAPENTIN [Concomitant]
  7. CHLORAMPHENICOL [Concomitant]
  8. DICLOFENAC SODIUM [Concomitant]
  9. KETOPROFEN [Concomitant]
  10. PERINDOPRIL (PERINDOPRIL) [Concomitant]
  11. LYRICA [Concomitant]
  12. SPALT SCHMERZGEL (FELBINAC) [Concomitant]
  13. CETRIZIN (CEFATRIZINE PROPYLENGLYCOLATE SULFATE) [Concomitant]
  14. HYPROMELLOSE (HYPROMELLOSE) [Concomitant]

REACTIONS (2)
  - BLOOD FIBRINOGEN DECREASED [None]
  - CONTUSION [None]
